FAERS Safety Report 7394600-7 (Version None)
Quarter: 2011Q2

REPORT INFORMATION
  Report Type: 
  Country: None (occurrence: None)
  Receive Date: 20110405
  Receipt Date: 20110329
  Transmission Date: 20111010
  Serious: Yes (Other)
  Sender: FDA-Public Use
  Company Number: US-EISAI INC-E7389-01203-SPO-US

PATIENT
  Sex: Female

DRUGS (7)
  1. HALAVEN [Suspect]
  2. OXYCODONE [Concomitant]
  3. MOXIFLOXACIN [Concomitant]
     Dates: start: 20110325
  4. HALAVEN [Suspect]
     Indication: BREAST CANCER METASTATIC
     Dates: start: 20110217
  5. HALCION [Concomitant]
  6. ZOMETA [Concomitant]
  7. MAGIC MOUTHWASH [Concomitant]

REACTIONS (3)
  - THROMBOCYTOPENIA [None]
  - ANAEMIA [None]
  - PULMONARY TOXICITY [None]
